FAERS Safety Report 19599885 (Version 7)
Quarter: 2022Q2

REPORT INFORMATION
  Report Type: Spontaneous
  Country: FR (occurrence: FR)
  Receive Date: 20210722
  Receipt Date: 20220513
  Transmission Date: 20220721
  Serious: Yes (Hospitalization, Other)
  Sender: FDA-Public Use
  Company Number: FR-002147023-NVSC2021FR149317

PATIENT
  Age: 56 Year
  Sex: Male
  Weight: 73 kg

DRUGS (3)
  1. CYTARABINE [Suspect]
     Active Substance: CYTARABINE
     Indication: Philadelphia chromosome positive
     Dosage: 5370 MG, DAILY D2 TO D3
     Route: 042
     Dates: start: 20210612, end: 20210613
  2. CYTARABINE [Suspect]
     Active Substance: CYTARABINE
     Dosage: 40 MG, DAILY, D9
     Route: 037
     Dates: start: 20210619, end: 20210619
  3. DEXAMETHASONE [Suspect]
     Active Substance: DEXAMETHASONE
     Indication: Acute lymphocytic leukaemia
     Dosage: 40 MG
     Route: 048
     Dates: start: 20210319, end: 20210604

REACTIONS (8)
  - Pneumocystis jirovecii pneumonia [Recovered/Resolved]
  - Epstein-Barr virus infection reactivation [Recovered/Resolved with Sequelae]
  - Hyperthermia [Recovered/Resolved with Sequelae]
  - Anxiety [Unknown]
  - Platelet count decreased [Unknown]
  - Haemoglobin decreased [Unknown]
  - Blood creatinine increased [Unknown]
  - Biopsy colon abnormal [Unknown]

NARRATIVE: CASE EVENT DATE: 20210620
